FAERS Safety Report 4525001-4 (Version None)
Quarter: 2004Q4

REPORT INFORMATION
  Report Type: 
  Country: None (occurrence: None)
  Receive Date: 20041117
  Receipt Date: 20030714
  Transmission Date: 20050328
  Serious: Yes (Other)
  Sender: FDA-Public Use
  Company Number: C2003-1757.01

PATIENT
  Age: 64 Year
  Sex: Male

DRUGS (19)
  1. CLOZAPINE [Suspect]
     Indication: SCHIZOPHRENIA
     Dosage: SEE IMAGE
     Route: 048
     Dates: end: 20030711
  2. CLOZAPINE [Suspect]
     Indication: SCHIZOPHRENIA
     Dosage: SEE IMAGE
     Route: 048
     Dates: start: 20030714
  3. AMLODIPINE [Concomitant]
  4. ASPIRIN [Concomitant]
  5. CIMETIDINE [Concomitant]
  6. DOCUSATE SODIUM [Concomitant]
  7. DOXAZOSIN MESYLATE [Concomitant]
  8. FOLIC ACID [Concomitant]
  9. HYDROCHLOROTHIAZIDE [Concomitant]
  10. IPATROPIUM BROMIDE [Concomitant]
  11. ALBUTEROL SULFATE [Concomitant]
  12. LACTULOSE [Concomitant]
  13. LEVOFLOXACIN [Concomitant]
  14. LISINOPRIL [Concomitant]
  15. METOCLOPRAMIDE [Concomitant]
  16. POLYCARBOPHIL [Concomitant]
  17. POTASSIUM CHLORIDE [Concomitant]
  18. RISPERIDONE [Concomitant]
  19. THIAMINE [Concomitant]

REACTIONS (1)
  - LEUKOPENIA [None]
